FAERS Safety Report 6594083-0 (Version None)
Quarter: 2010Q1

REPORT INFORMATION
  Report Type: 
  Country: None (occurrence: None)
  Receive Date: 20100222
  Receipt Date: 20100212
  Transmission Date: 20100710
  Serious: Yes (Hospitalization)
  Sender: FDA-Public Use
  Company Number: GXKR2010IT01852

PATIENT
  Sex: Female

DRUGS (3)
  1. ATENOLOL [Suspect]
     Route: 065
  2. AMLODIPINE [Suspect]
     Route: 065
  3. FUROSEMIDE (NGX) [Suspect]
     Route: 065

REACTIONS (1)
  - SYNCOPE [None]
